FAERS Safety Report 18925625 (Version 3)
Quarter: 2021Q1

REPORT INFORMATION
  Report Type: Spontaneous
  Country: US (occurrence: US)
  Receive Date: 20210222
  Receipt Date: 20210325
  Transmission Date: 20210420
  Serious: No
  Sender: FDA-Public Use
  Company Number: US-AMAG PHARMACEUTICALS, INC.-AMAG202100495

PATIENT
  Age: 27 Year
  Sex: Female

DRUGS (1)
  1. MAKENA [Suspect]
     Active Substance: HYDROXYPROGESTERONE CAPROATE
     Indication: PREMATURE LABOUR
     Dosage: NDC# 64011?301?03
     Route: 058
     Dates: start: 20210108

REACTIONS (3)
  - Underdose [Not Recovered/Not Resolved]
  - Product administration error [Unknown]
  - Injection site pain [Recovered/Resolved]
